FAERS Safety Report 6821807-7 (Version None)
Quarter: 2010Q3

REPORT INFORMATION
  Report Type: 
  Country: None (occurrence: None)
  Receive Date: 20100708
  Receipt Date: 20100708
  Transmission Date: 20110219
  Serious: No
  Sender: FDA-Public Use
  Company Number: None

PATIENT
  Sex: Female

DRUGS (1)
  1. CLOZAPINE [Suspect]

REACTIONS (4)
  - FEELING ABNORMAL [None]
  - HEADACHE [None]
  - PRODUCT SUBSTITUTION ISSUE [None]
  - RASH [None]
